FAERS Safety Report 22655700 (Version 1)
Quarter: 2023Q2

REPORT INFORMATION
  Report Type: Spontaneous
  Country: US (occurrence: None)
  Receive Date: 20230629
  Receipt Date: 20230629
  Transmission Date: 20230722
  Serious: Yes (Hospitalization)
  Sender: FDA-Public Use
  Company Number: None

PATIENT
  Age: 37 Year
  Sex: Female

DRUGS (1)
  1. LETROZOLE [Suspect]
     Active Substance: LETROZOLE

REACTIONS (1)
  - Foot fracture [None]

NARRATIVE: CASE EVENT DATE: 20230628
